FAERS Safety Report 8889113 (Version 1)
Quarter: 2012Q4

REPORT INFORMATION
  Report Type: 
  Country: US (occurrence: US)
  Receive Date: 20121106
  Receipt Date: 20121106
  Transmission Date: 20130627
  Serious: No
  Sender: FDA-Public Use
  Company Number: US-ASTRAZENECA-2012SE79268

PATIENT
  Age: 46 Year
  Sex: Female
  Weight: 77.1 kg

DRUGS (12)
  1. SEROQUEL [Suspect]
     Indication: BIPOLAR DISORDER
     Route: 048
     Dates: start: 2007, end: 201208
  2. SEROQUEL [Suspect]
     Indication: INSOMNIA
     Route: 048
     Dates: start: 2007, end: 201208
  3. SEROQUEL [Suspect]
     Indication: BIPOLAR DISORDER
     Route: 048
     Dates: start: 201208
  4. SEROQUEL [Suspect]
     Indication: INSOMNIA
     Route: 048
     Dates: start: 201208
  5. SEROQUEL [Suspect]
     Indication: BIPOLAR DISORDER
     Route: 048
  6. SEROQUEL [Suspect]
     Indication: INSOMNIA
     Route: 048
  7. SEROQUEL [Suspect]
     Indication: BIPOLAR DISORDER
     Route: 048
  8. SEROQUEL [Suspect]
     Indication: INSOMNIA
     Route: 048
  9. LITHIUM [Concomitant]
     Indication: BIPOLAR DISORDER
  10. KLONOPIN [Concomitant]
     Indication: PANIC ATTACK
  11. DILTIAZEM [Concomitant]
     Indication: CARDIAC DISORDER
  12. SIMVASTATIN [Concomitant]
     Indication: BLOOD CHOLESTEROL INCREASED

REACTIONS (11)
  - Adverse drug reaction [Unknown]
  - Middle insomnia [Unknown]
  - Amnesia [Unknown]
  - Insomnia [Unknown]
  - Feeling abnormal [Unknown]
  - Depression [Unknown]
  - Increased appetite [Unknown]
  - Weight increased [Unknown]
  - Blood cholesterol increased [Unknown]
  - Intentional drug misuse [Unknown]
  - Drug ineffective [Unknown]
